FAERS Safety Report 6251664-1 (Version None)
Quarter: 2009Q2

REPORT INFORMATION
  Report Type: 
  Country: None (occurrence: None)
  Receive Date: 20090626
  Receipt Date: 20090626
  Transmission Date: 20091009
  Serious: No
  Sender: FDA-Public Use
  Company Number: None

PATIENT
  Age: 58 Year
  Sex: Female
  Weight: 61.6892 kg

DRUGS (2)
  1. ZICAM GEL SWABS ZINCUM GLUCOCIUM ZICAM 2X [Suspect]
     Indication: NASOPHARYNGITIS
     Dosage: 1 SWAB EVERY 4-5 HOURS NASAL
     Route: 045
     Dates: start: 20090415, end: 20090422
  2. ORAL MIST MINT ZINCUM GLUCOCINUM 1X ZICAM [Suspect]
     Indication: NASOPHARYNGITIS
     Dosage: 1 SPRAY EVERY 4-5 HOURS BUCCAL
     Route: 002
     Dates: start: 20090415, end: 20090425

REACTIONS (2)
  - ANOSMIA [None]
  - HYPOGEUSIA [None]
